FAERS Safety Report 9124457 (Version 2)
Quarter: 2013Q2

REPORT INFORMATION
  Report Type: Report from Study
  Country: CA (occurrence: CA)
  Receive Date: 20130227
  Receipt Date: 20130429
  Transmission Date: 20140414
  Serious: Yes (Hospitalization, Other)
  Sender: FDA-Public Use
  Company Number: CA-JNJFOC-20130111338

PATIENT
  Age: 49 Year
  Sex: Female
  Weight: 67 kg

DRUGS (7)
  1. REMICADE [Suspect]
     Indication: CROHN^S DISEASE
     Route: 042
     Dates: start: 20130419
  2. REMICADE [Suspect]
     Indication: CROHN^S DISEASE
     Route: 042
     Dates: start: 20120405
  3. PANTOLOC [Concomitant]
     Route: 065
  4. IMURAN [Concomitant]
     Route: 065
  5. CELEXA [Concomitant]
     Route: 065
  6. MULTIVITAMINS [Concomitant]
     Route: 065
  7. CITALOPRAM [Concomitant]
     Route: 065

REACTIONS (7)
  - Intestinal resection [Unknown]
  - Intestinal obstruction [Recovering/Resolving]
  - Staphylococcal infection [Unknown]
  - Condition aggravated [Unknown]
  - Abdominal pain [Recovered/Resolved]
  - Muscle spasms [Recovered/Resolved]
  - Nausea [Recovered/Resolved]
